FAERS Safety Report 7803299-4 (Version None)
Quarter: 2011Q4

REPORT INFORMATION
  Report Type: 
  Country: None (occurrence: None)
  Receive Date: 20111007
  Receipt Date: 20111005
  Transmission Date: 20120403
  Serious: Yes (Hospitalization, Other)
  Sender: FDA-Public Use
  Company Number: CA-ABBOTT-11P-028-0841744-00

PATIENT
  Age: 60 Year
  Sex: Male
  Weight: 99.88 kg

DRUGS (9)
  1. SENOKOT [Concomitant]
     Indication: DRUG THERAPY
     Dosage: 1 IN 1 DAY, AT BEDTIME
     Dates: start: 20110701
  2. CASODEX [Concomitant]
     Indication: PROSTATE CANCER
  3. BICALUTAMIDE [Concomitant]
     Indication: PRODUCT USED FOR UNKNOWN INDICATION
  4. LUPRON DEPOT [Suspect]
     Indication: PROSTATE CANCER
     Route: 030
     Dates: start: 20110610
  5. COLACE [Concomitant]
     Indication: DRUG THERAPY
     Route: 048
     Dates: start: 20110701
  6. DULCOLAX [Concomitant]
     Indication: DRUG THERAPY
     Route: 048
     Dates: start: 20110701
  7. PANTOPRAZOLE SODIUM [Concomitant]
     Indication: DRUG THERAPY
     Route: 048
     Dates: start: 20110701
  8. DECADRON [Concomitant]
     Indication: PROSTATE CANCER METASTATIC
     Route: 048
     Dates: start: 20110601
  9. CASODEX [Concomitant]
     Indication: ANTIANDROGEN THERAPY
     Route: 048
     Dates: start: 20110601

REACTIONS (4)
  - PROSTATE CANCER METASTATIC [None]
  - BONE PAIN [None]
  - SPINAL FRACTURE [None]
  - NEOPLASM MALIGNANT [None]
